FAERS Safety Report 7936381-1 (Version None)
Quarter: 2011Q4

REPORT INFORMATION
  Report Type: 
  Country: None (occurrence: None)
  Receive Date: 20111121
  Receipt Date: 20111111
  Transmission Date: 20120403
  Serious: Yes (Hospitalization)
  Sender: FDA-Public Use
  Company Number: 2011HGS-002776

PATIENT
  Age: 34 Year
  Sex: Female
  Weight: 74.8435 kg

DRUGS (4)
  1. HYDROCODONE (HYDROCODONE) (HYDROCODONE) [Concomitant]
  2. TYLENOL (PARACETAMOL) (PARACETAMOL) [Concomitant]
  3. BENLYSTA [Suspect]
     Indication: SYSTEMIC LUPUS ERYTHEMATOSUS
     Dosage: 1 IN 28 D,  INTRAVENOUS DRIP
     Route: 041
     Dates: start: 20110801
  4. PHENERGAN (PROMETHAZINE HYDROCHLORIDE)(PROMETHAZINE HYDROCHLORIDE) [Concomitant]

REACTIONS (12)
  - PROCEDURAL PAIN [None]
  - APHAGIA [None]
  - COUGH [None]
  - OVARIAN CYSTECTOMY [None]
  - FATIGUE [None]
  - OOPHORECTOMY BILATERAL [None]
  - MYALGIA [None]
  - MALAISE [None]
  - NAUSEA [None]
  - HEADACHE [None]
  - BONE PAIN [None]
  - DRUG INEFFECTIVE [None]
